FAERS Safety Report 15183685 (Version 3)
Quarter: 2018Q3

REPORT INFORMATION
  Report Type: Spontaneous
  Country: US (occurrence: US)
  Receive Date: 20180723
  Receipt Date: 20180822
  Transmission Date: 20181010
  Serious: Yes (Hospitalization)
  Sender: FDA-Public Use
  Company Number: US-ACTELION-A-US2018-175751

PATIENT
  Age: 79 Year
  Sex: Female
  Weight: 65.31 kg

DRUGS (3)
  1. ADEMPAS [Concomitant]
     Active Substance: RIOCIGUAT
  2. OPSUMIT [Suspect]
     Active Substance: MACITENTAN
     Indication: PULMONARY ARTERIAL HYPERTENSION
     Dosage: 10 MG, QD
     Route: 048
  3. TYVASO [Concomitant]
     Active Substance: TREPROSTINIL

REACTIONS (10)
  - Vomiting [Unknown]
  - Nausea [Unknown]
  - Constipation [Unknown]
  - Hypotension [Unknown]
  - Colitis [Unknown]
  - Haemoglobin decreased [Unknown]
  - Abdominal distension [Unknown]
  - Abdominal pain lower [Unknown]
  - Blood potassium decreased [Unknown]
  - Polypectomy [Unknown]

NARRATIVE: CASE EVENT DATE: 20180709
